FAERS Safety Report 7483920-3 (Version None)
Quarter: 2011Q2

REPORT INFORMATION
  Report Type: 
  Country: None (occurrence: None)
  Receive Date: 20110517
  Receipt Date: 20110509
  Transmission Date: 20111010
  Serious: Yes (Hospitalization)
  Sender: FDA-Public Use
  Company Number: US-US-EMD SERONO, INC.-238700J08USA

PATIENT
  Sex: Female
  Weight: 57 kg

DRUGS (5)
  1. BACLOFEN [Concomitant]
     Indication: MUSCLE SPASMS
     Route: 065
  2. NEURONTIN [Concomitant]
     Indication: MUSCLE SPASMS
  3. REBIF [Suspect]
     Indication: MULTIPLE SCLEROSIS
     Route: 058
     Dates: start: 20021201, end: 20080806
  4. REBIF [Suspect]
     Route: 058
     Dates: start: 20101220, end: 20110301
  5. UNSPECIFIED BLOOD PRESSURE MEDICATION [Concomitant]
     Indication: HYPERTENSION
     Route: 065

REACTIONS (3)
  - FEMUR FRACTURE [None]
  - FALL [None]
  - MULTIPLE SCLEROSIS RELAPSE [None]
